FAERS Safety Report 8492489-6 (Version None)
Quarter: 2012Q3

REPORT INFORMATION
  Report Type: 
  Country: None (occurrence: None)
  Receive Date: 20120706
  Receipt Date: 20120627
  Transmission Date: 20120928
  Serious: No
  Sender: FDA-Public Use
  Company Number: US-PFIZER INC-2012120003

PATIENT
  Sex: Female
  Weight: 212 kg

DRUGS (12)
  1. REVATIO [Suspect]
     Indication: PULMONARY HYPERTENSION
     Dosage: 20 MG, 3X/DAY
     Dates: start: 20120215
  2. PREDNISONE [Concomitant]
     Dosage: 5 MG, 1X/DAY
  3. FOLIC ACID [Concomitant]
     Dosage: 1 MG, 1X/DAY
  4. NORVASC [Concomitant]
     Dosage: 10 MG, 1X/DAY
  5. REVATIO [Suspect]
     Dosage: 20 MG, 3X/DAY
     Route: 048
     Dates: start: 20061001
  6. NEXIUM [Concomitant]
     Indication: GASTROOESOPHAGEAL REFLUX DISEASE
     Dosage: 40 MG, AS NEEDED
  7. HYDROCHLOROTHIAZIDE [Concomitant]
     Dosage: 25 MG, 1X/DAY
  8. POTASSIUM [Concomitant]
  9. MIRENA [Concomitant]
     Indication: CONTRACEPTION
  10. METHOTREXATE [Concomitant]
     Indication: POLYARTHRITIS
     Dosage: 15 MG, 6 PILLS WEEKLY
     Dates: start: 20100601
  11. NAPROSYN [Concomitant]
     Dosage: 500 MG, 1X/DAY, AS NEEDED
  12. VITAMIN B12 FOR INJECTION [Concomitant]

REACTIONS (2)
  - PAIN IN EXTREMITY [None]
  - DIGITAL ULCER [None]
